FAERS Safety Report 9304863 (Version 1)
Quarter: 2013Q2

REPORT INFORMATION
  Report Type: Spontaneous
  Country: IT (occurrence: None)
  Receive Date: 20130521
  Receipt Date: 20130521
  Transmission Date: 20140414
  Serious: Yes (Death)
  Sender: FDA-Public Use
  Company Number: 2013STPI000182

PATIENT
  Sex: Female

DRUGS (6)
  1. MATULANE [Suspect]
     Indication: PRODUCT USED FOR UNKNOWN INDICATION
  2. PREDNISON ALPHARMA (PREDNISONE) [Concomitant]
  3. CYCLOPHOSPHAMIDE DCI (CYCLOPHOSPHAMIDE) [Concomitant]
  4. ETOPOSIDE (ETOPOSIDE) [Concomitant]
  5. DOXORUBICINUM (DOXORUBICIN HYDROCHLORIDE) [Concomitant]
  6. BLEOMYCINE DCL (BLEOMYCIN SULFATE) [Concomitant]

REACTIONS (1)
  - Gastrointestinal haemorrhage [None]
